FAERS Safety Report 7600464-6 (Version None)
Quarter: 2011Q2

REPORT INFORMATION
  Report Type: 
  Country: None (occurrence: None)
  Receive Date: 20110629
  Receipt Date: 20110615
  Transmission Date: 20111010
  Serious: Yes (Other)
  Sender: FDA-Public Use
  Company Number: 2011P1007188

PATIENT
  Age: 63 Year
  Sex: Male
  Weight: 68.0396 kg

DRUGS (9)
  1. ZOCOR [Concomitant]
  2. ATIVAN [Concomitant]
  3. PLAVIX [Concomitant]
  4. TRIAMTERENE [Concomitant]
  5. LISINOPRIL [Concomitant]
  6. ASPIRIN [Concomitant]
  7. GLYBURIDE [Suspect]
     Indication: HYPERTENSION
     Dosage: 2.5 MG;QD;PO
     Route: 048
     Dates: start: 20090101
  8. GLYBURIDE [Suspect]
     Indication: TYPE 2 DIABETES MELLITUS
     Dosage: 2.5 MG;QD;PO
     Route: 048
     Dates: start: 20090101
  9. ATENOLOL [Concomitant]

REACTIONS (5)
  - MYOCARDIAL INFARCTION [None]
  - PRODUCT QUALITY ISSUE [None]
  - FATIGUE [None]
  - ASTHENIA [None]
  - NASOPHARYNGITIS [None]
